FAERS Safety Report 9927992 (Version 1)
Quarter: 2014Q1

REPORT INFORMATION
  Report Type: Spontaneous
  Country: US (occurrence: US)
  Receive Date: 20140227
  Receipt Date: 20140227
  Transmission Date: 20141002
  Serious: No
  Sender: FDA-Public Use
  Company Number: US-PFIZER INC-2014055024

PATIENT
  Age: 50 Year
  Sex: Male
  Weight: 89.34 kg

DRUGS (3)
  1. RAPAMUNE [Suspect]
     Dosage: 1 MG, 1X/DAY
     Dates: start: 201401
  2. PROGRAF [Concomitant]
     Dosage: 1.5 MG, 2X/DAY
  3. PREDNISONE [Concomitant]
     Dosage: 10 MG, 1X/DAY

REACTIONS (1)
  - Blood disorder [Unknown]
